FAERS Safety Report 23654209 (Version 3)
Quarter: 2024Q2

REPORT INFORMATION
  Report Type: Report from Study
  Country: AR (occurrence: AR)
  Receive Date: 20240320
  Receipt Date: 20240523
  Transmission Date: 20240716
  Serious: Yes (Other)
  Sender: FDA-Public Use
  Company Number: AR-002147023-NVSC2024AR055430

PATIENT
  Age: 31 Year
  Sex: Female

DRUGS (2)
  1. COSENTYX [Suspect]
     Active Substance: SECUKINUMAB
     Indication: Psoriatic arthropathy
     Dosage: 300 MG, QMO
     Route: 058
     Dates: start: 20231222
  2. COSENTYX [Suspect]
     Active Substance: SECUKINUMAB
     Dosage: UNK, APPLIED ON 20 FEB
     Route: 065

REACTIONS (13)
  - Oesophageal candidiasis [Unknown]
  - Swelling [Unknown]
  - Oropharyngeal pain [Unknown]
  - Discomfort [Unknown]
  - Influenza like illness [Unknown]
  - Malaise [Unknown]
  - Pyrexia [Unknown]
  - Headache [Unknown]
  - Secretion discharge [Unknown]
  - Vulvovaginal candidiasis [Unknown]
  - Eosinophilic oesophagitis [Unknown]
  - Conjunctivitis [Unknown]
  - Dysphagia [Unknown]

NARRATIVE: CASE EVENT DATE: 20240219
